FAERS Safety Report 23552388 (Version 1)
Quarter: 2024Q1

REPORT INFORMATION
  Report Type: Spontaneous
  Country: US (occurrence: US)
  Receive Date: 20240222
  Receipt Date: 20240222
  Transmission Date: 20240410
  Serious: No
  Sender: FDA-Public Use
  Company Number: US-Jiangsu Hengrui Medicine Co., Ltd.-2153535

PATIENT
  Age: 23 Year
  Sex: Female
  Weight: 54.7 kg

DRUGS (1)
  1. GADOBUTROL [Suspect]
     Active Substance: GADOBUTROL
     Dates: start: 20231221, end: 20231221

REACTIONS (1)
  - Erythema [Unknown]

NARRATIVE: CASE EVENT DATE: 20231221
